FAERS Safety Report 25074877 (Version 1)
Quarter: 2025Q1

REPORT INFORMATION
  Report Type: Spontaneous
  Country: US (occurrence: US)
  Receive Date: 20250313
  Receipt Date: 20250313
  Transmission Date: 20250409
  Serious: Yes (Other)
  Sender: PFIZER
  Company Number: US-PFIZER INC-202500054240

PATIENT
  Age: 67 Year
  Sex: Female
  Weight: 70.76 kg

DRUGS (1)
  1. IBRANCE [Suspect]
     Active Substance: PALBOCICLIB
     Indication: Breast cancer female

REACTIONS (3)
  - Shoulder fracture [Recovered/Resolved]
  - Fall [Unknown]
  - Bone disorder [Unknown]

NARRATIVE: CASE EVENT DATE: 20250116
